FAERS Safety Report 16344667 (Version 2)
Quarter: 2019Q2

REPORT INFORMATION
  Report Type: Report from Study
  Country: CA (occurrence: CA)
  Receive Date: 20190522
  Receipt Date: 20190627
  Transmission Date: 20190711
  Serious: Yes (Hospitalization, Other)
  Sender: FDA-Public Use
  Company Number: CA-B.I. PHARMACEUTICALS,INC./RIDGEFIELD-2019-BI-011119

PATIENT
  Sex: Female

DRUGS (3)
  1. GILOTRIF [Suspect]
     Active Substance: AFATINIB
     Route: 048
     Dates: start: 20190215
  2. GILOTRIF [Suspect]
     Active Substance: AFATINIB
     Route: 048
  3. GILOTRIF [Suspect]
     Active Substance: AFATINIB
     Indication: LUNG CANCER METASTATIC
     Route: 048

REACTIONS (13)
  - Brain neoplasm [Not Recovered/Not Resolved]
  - Oral candidiasis [Unknown]
  - Gastroenteritis viral [Recovering/Resolving]
  - Diarrhoea [Recovered/Resolved]
  - Acne [Not Recovered/Not Resolved]
  - Diarrhoea [Unknown]
  - Mouth ulceration [Recovering/Resolving]
  - Skin ulcer [Not Recovered/Not Resolved]
  - Hangnail [Not Recovered/Not Resolved]
  - Ulcer [Not Recovered/Not Resolved]
  - Rash pustular [Not Recovered/Not Resolved]
  - Localised infection [Recovering/Resolving]
  - Nasal mucosal ulcer [Not Recovered/Not Resolved]
